FAERS Safety Report 5742559-8 (Version None)
Quarter: 2008Q2

REPORT INFORMATION
  Report Type: 
  Country: None (occurrence: None)
  Receive Date: 20080515
  Receipt Date: 20080515
  Transmission Date: 20081010
  Serious: Yes (Hospitalization, Other)
  Sender: FDA-Public Use
  Company Number: None

PATIENT
  Sex: Female
  Weight: 54.4316 kg

DRUGS (1)
  1. SINGULAIR [Suspect]
     Indication: HYPERSENSITIVITY
     Dosage: 10 MG  1 TAB AT NITE    ORAL
     Route: 048
     Dates: start: 20080403, end: 20080425

REACTIONS (7)
  - ANXIETY [None]
  - CHEST PAIN [None]
  - CRYING [None]
  - EAR PAIN [None]
  - INSOMNIA [None]
  - STRESS [None]
  - TINNITUS [None]
